FAERS Safety Report 6389741-7 (Version None)
Quarter: 2009Q4

REPORT INFORMATION
  Report Type: 
  Country: None (occurrence: None)
  Receive Date: 20091001
  Receipt Date: 20090922
  Transmission Date: 20100525
  Serious: Yes (Life-Threatening, Hospitalization)
  Sender: FDA-Public Use
  Company Number: KADN20090131

PATIENT
  Age: 27 Year
  Sex: Male

DRUGS (7)
  1. KADIAN [Suspect]
  2. OXYCODONE HCL [Suspect]
  3. ULTRAM [Suspect]
  4. DULOXETINE HYDROCHLORIDE [Suspect]
  5. PHENCYCLIDINE HYDROCHLORIDE [Suspect]
  6. MUSCLE RELAXANTS [Suspect]
  7. ANTICONVULSANT [Suspect]

REACTIONS (17)
  - BLOOD CHLORIDE INCREASED [None]
  - BLOOD CREATINE PHOSPHOKINASE INCREASED [None]
  - BODY TEMPERATURE INCREASED [None]
  - CONVULSION [None]
  - ELECTROCARDIOGRAM QT PROLONGED [None]
  - HYPERTENSION [None]
  - HYPOTENSION [None]
  - LUNG CONSOLIDATION [None]
  - MULTIPLE DRUG OVERDOSE INTENTIONAL [None]
  - MYDRIASIS [None]
  - NYSTAGMUS [None]
  - SINUS TACHYCARDIA [None]
  - SOMNOLENCE [None]
  - SUICIDAL IDEATION [None]
  - TACHYCARDIA [None]
  - TREMOR [None]
  - UNRESPONSIVE TO STIMULI [None]
